FAERS Safety Report 6549671-4 (Version None)
Quarter: 2010Q1

REPORT INFORMATION
  Report Type: 
  Country: None (occurrence: None)
  Receive Date: 20100125
  Receipt Date: 20100120
  Transmission Date: 20100710
  Serious: Yes (Death)
  Sender: FDA-Public Use
  Company Number: JP-BAYER-200914584BYL

PATIENT
  Age: 71 Year
  Sex: Male

DRUGS (17)
  1. NEXAVAR [Suspect]
     Indication: HEPATIC NEOPLASM MALIGNANT
     Dosage: UNIT DOSE: 200 MG
     Route: 048
     Dates: start: 20091114, end: 20091120
  2. URSO 250 [Concomitant]
     Route: 048
  3. EUGLUCON [Concomitant]
     Route: 048
  4. CARDENALIN [Concomitant]
     Route: 048
  5. CALBLOCK [Concomitant]
     Route: 048
  6. ZANTAC [Concomitant]
     Route: 065
  7. SELBEX [Concomitant]
     Route: 048
  8. PURSENNID [Concomitant]
     Route: 048
  9. LASIX [Concomitant]
     Route: 048
  10. TAKEPRON [Concomitant]
     Route: 048
     Dates: start: 20090930
  11. MAGNESIUM OXIDE [Concomitant]
     Route: 048
     Dates: start: 20090930
  12. ALDACTONE [Concomitant]
     Route: 048
     Dates: start: 20091019
  13. LIVACT [Concomitant]
     Route: 048
     Dates: start: 20091026
  14. VOLTAREN [Concomitant]
     Route: 054
     Dates: start: 20091109
  15. GASMOTIN [Concomitant]
     Route: 048
     Dates: start: 20091114
  16. PONTAL [Concomitant]
     Route: 048
     Dates: start: 20091114
  17. LACTULOSE [Concomitant]
     Route: 048
     Dates: start: 20091121

REACTIONS (1)
  - HEPATIC FAILURE [None]
